APPROVED DRUG PRODUCT: MEMANTINE HYDROCHLORIDE
Active Ingredient: MEMANTINE HYDROCHLORIDE
Strength: 5MG
Dosage Form/Route: TABLET;ORAL
Application: A208173 | Product #001
Applicant: HIKMA PHARMACEUTICALS LLC
Approved: Feb 28, 2020 | RLD: No | RS: No | Type: DISCN